FAERS Safety Report 24141655 (Version 1)
Quarter: 2024Q3

REPORT INFORMATION
  Report Type: Spontaneous
  Country: US (occurrence: None)
  Receive Date: 20240726
  Receipt Date: 20240726
  Transmission Date: 20241017
  Serious: Yes (Disabling, Other)
  Sender: Public
  Company Number: None

PATIENT
  Age: 26 Year
  Sex: Male
  Weight: 72 kg

DRUGS (1)
  1. DOTAREM [Suspect]
     Active Substance: GADOTERATE MEGLUMINE
     Indication: X-ray with contrast
     Dates: start: 20220324, end: 20220324

REACTIONS (9)
  - Vibratory sense increased [None]
  - Electric shock sensation [None]
  - Paraesthesia [None]
  - Burning sensation [None]
  - Burning sensation [None]
  - Suicidal ideation [None]
  - Depression [None]
  - Asthenia [None]
  - Pain in extremity [None]

NARRATIVE: CASE EVENT DATE: 20220418
